FAERS Safety Report 18265834 (Version 1)
Quarter: 2020Q3

REPORT INFORMATION
  Report Type: Report from Study
  Country: None (occurrence: US)
  Receive Date: 20200914
  Receipt Date: 20200914
  Transmission Date: 20201103
  Serious: Yes (Other)
  Sender: FDA-Public Use
  Company Number: US-ABBVIE-20K-163-3544833-00

PATIENT
  Age: 74 Year
  Sex: Female
  Weight: 69.92 kg

DRUGS (9)
  1. MAGNESIUM [Concomitant]
     Active Substance: MAGNESIUM
     Indication: MINERAL SUPPLEMENTATION
     Route: 065
  2. OYSCO [Concomitant]
     Indication: BONE DISORDER
     Route: 065
  3. ASPIRIN. [Concomitant]
     Active Substance: ASPIRIN
     Indication: CARDIAC DISORDER
     Route: 065
  4. AIMOVIG [Concomitant]
     Active Substance: ERENUMAB-AOOE
     Indication: MIGRAINE
  5. AIMOVIG [Concomitant]
     Active Substance: ERENUMAB-AOOE
     Indication: HEADACHE
     Route: 065
  6. VITAMIN B6 [Concomitant]
     Active Substance: PYRIDOXINE HYDROCHLORIDE
     Indication: VITAMIN SUPPLEMENTATION
     Route: 065
  7. CREON [Concomitant]
     Active Substance: PANCRELIPASE AMYLASE\PANCRELIPASE LIPASE\PANCRELIPASE PROTEASE
     Indication: GASTRIC DISORDER
     Route: 065
  8. GAVILAX [Concomitant]
     Active Substance: POLYETHYLENE GLYCOL 3350
     Indication: PRODUCT USED FOR UNKNOWN INDICATION
     Route: 065
  9. HUMIRA [Suspect]
     Active Substance: ADALIMUMAB
     Indication: RHEUMATOID ARTHRITIS
     Route: 058
     Dates: start: 2018

REACTIONS (5)
  - Loss of consciousness [Recovered/Resolved]
  - Limb injury [Recovering/Resolving]
  - Back injury [Unknown]
  - Head injury [Recovering/Resolving]
  - Road traffic accident [Unknown]

NARRATIVE: CASE EVENT DATE: 20200813
